FAERS Safety Report 8338977-4 (Version None)
Quarter: 2012Q2

REPORT INFORMATION
  Report Type: 
  Country: None (occurrence: None)
  Receive Date: 20120507
  Receipt Date: 20120501
  Transmission Date: 20120825
  Serious: Yes (Hospitalization)
  Sender: FDA-Public Use
  Company Number: US-BAYER-2012-043168

PATIENT
  Age: 39 Year
  Sex: Female
  Weight: 105.67 kg

DRUGS (8)
  1. YAZ [Suspect]
     Indication: MENSTRUATION IRREGULAR
  2. ADIPEX [Concomitant]
     Indication: OBESITY
     Route: 048
  3. CEPHALEXIN [Concomitant]
     Dosage: 500 MG, UNK
     Route: 048
  4. AMITRIPTYLINE HCL [Concomitant]
     Dosage: 25 MG, UNK
     Route: 048
  5. PROMETHAZINE [Concomitant]
     Dosage: 25 MG, UNK
     Route: 048
  6. AZITHROMYCIN [Concomitant]
     Dosage: 250 MG, UNK
     Route: 048
  7. RELPAX [Concomitant]
     Dosage: 40 MG, UNK
     Route: 048
  8. HYDROCODONE BITARTRATE + ACETAMINOPHEN [Concomitant]
     Dosage: 7.5-750 MG
     Route: 048

REACTIONS (1)
  - DEEP VEIN THROMBOSIS [None]
